FAERS Safety Report 12494018 (Version 1)
Quarter: 2016Q2

REPORT INFORMATION
  Report Type: Spontaneous
  Country: CA (occurrence: CA)
  Receive Date: 20160623
  Receipt Date: 20160623
  Transmission Date: 20160815
  Serious: Yes (Other)
  Sender: FDA-Public Use
  Company Number: CA-VALIDUS PHARMACEUTICALS LLC-CA-2016VAL002155

PATIENT
  Age: 39 Year
  Sex: Female

DRUGS (3)
  1. LASIX [Suspect]
     Active Substance: FUROSEMIDE
     Dosage: 80 MG, UNK
  2. LASIX [Suspect]
     Active Substance: FUROSEMIDE
     Indication: RHEUMATOID ARTHRITIS
     Dosage: UNK, BID
     Dates: start: 20160503
  3. XELJANZ [Suspect]
     Active Substance: TOFACITINIB CITRATE
     Indication: RHEUMATOID ARTHRITIS
     Dosage: 5 MG, DAILY
     Route: 048
     Dates: start: 20151214

REACTIONS (14)
  - Condition aggravated [Unknown]
  - Swelling [Not Recovered/Not Resolved]
  - Fatigue [Not Recovered/Not Resolved]
  - Rheumatoid arthritis [Unknown]
  - Drug ineffective [Unknown]
  - Malaise [Not Recovered/Not Resolved]
  - Hypoaesthesia [Not Recovered/Not Resolved]
  - Migraine [Recovered/Resolved]
  - Muscle spasms [Recovered/Resolved]
  - Costochondritis [Recovered/Resolved]
  - Nasopharyngitis [Unknown]
  - Oral candidiasis [Recovering/Resolving]
  - Insomnia [Not Recovered/Not Resolved]
  - Headache [Unknown]

NARRATIVE: CASE EVENT DATE: 20160112
